FAERS Safety Report 21053719 (Version 2)
Quarter: 2022Q3

REPORT INFORMATION
  Report Type: Spontaneous
  Country: US (occurrence: US)
  Receive Date: 20220707
  Receipt Date: 20220713
  Transmission Date: 20221027
  Serious: Yes (Other)
  Sender: FDA-Public Use
  Company Number: US-BAYER-2022A094322

PATIENT
  Sex: Female

DRUGS (1)
  1. KYLEENA [Suspect]
     Active Substance: LEVONORGESTREL
     Dosage: 17.5?G/DAY
     Route: 015
     Dates: start: 202104

REACTIONS (6)
  - Post procedural haemorrhage [None]
  - Procedural pain [None]
  - Device malfunction [None]
  - Device defective [None]
  - Hormone level abnormal [None]
  - Ovarian cyst [None]

NARRATIVE: CASE EVENT DATE: 20210101
